FAERS Safety Report 15201443 (Version 1)
Quarter: 2018Q3

REPORT INFORMATION
  Report Type: Spontaneous
  Country: FR (occurrence: FR)
  Receive Date: 20180726
  Receipt Date: 20180726
  Transmission Date: 20181010
  Serious: Yes (Other)
  Sender: FDA-Public Use
  Company Number: FR-MERCK KGAA-2052763

PATIENT
  Age: 46 Year
  Sex: Female
  Weight: 71 kg

DRUGS (1)
  1. NOVOTHYROX [Suspect]
     Active Substance: LEVOTHYROXINE SODIUM
     Indication: AUTOIMMUNE THYROIDITIS
     Route: 048
     Dates: start: 201704, end: 20180405

REACTIONS (18)
  - Major depression [Recovered/Resolved]
  - Feeling abnormal [Recovered/Resolved]
  - Dyspnoea [Recovered/Resolved]
  - Vertigo [Recovered/Resolved]
  - Hepatic pain [Recovered/Resolved]
  - Arthralgia [Recovered/Resolved]
  - Vision blurred [Recovered/Resolved]
  - Abdominal pain upper [Recovered/Resolved]
  - Impaired driving ability [Recovered/Resolved]
  - Headache [Recovered/Resolved]
  - Fatigue [Recovered/Resolved]
  - Disturbance in attention [Recovered/Resolved]
  - Abdominal pain [Recovered/Resolved]
  - Insomnia [Recovered/Resolved]
  - Impaired work ability [Recovered/Resolved]
  - Palpitations [Recovered/Resolved]
  - Negative thoughts [Recovered/Resolved]
  - Myalgia [Recovered/Resolved]

NARRATIVE: CASE EVENT DATE: 201704
